FAERS Safety Report 21728366 (Version 1)
Quarter: 2022Q4

REPORT INFORMATION
  Report Type: Spontaneous
  Country: US (occurrence: US)
  Receive Date: 20221214
  Receipt Date: 20221214
  Transmission Date: 20230113
  Serious: No
  Sender: FDA-Public Use
  Company Number: US-PFIZER INC-202201355959

PATIENT
  Age: 65 Year
  Sex: Female
  Weight: 72.57 kg

DRUGS (4)
  1. LEVOXYL [Suspect]
     Active Substance: LEVOTHYROXINE SODIUM
     Indication: Thyroidectomy
     Dosage: 3 LEVOXYL 50MCG PILLS ONE DAY AND 2 AND A HALF LEVOXYL 50MCG PILLS THE NEXT DAY, ALTERNATES DAILY
     Dates: start: 201405
  2. LEVOXYL [Suspect]
     Active Substance: LEVOTHYROXINE SODIUM
     Indication: Thyroidectomy
     Dosage: 150 UG
  3. LEVOXYL [Suspect]
     Active Substance: LEVOTHYROXINE SODIUM
     Indication: Thyroidectomy
     Dosage: 125 UG
  4. HYDROCHLOROTHIAZIDE [Concomitant]
     Active Substance: HYDROCHLOROTHIAZIDE
     Indication: Polyuria
     Dosage: 12.5 MG, 2X/DAY

REACTIONS (1)
  - Rash [Recovered/Resolved]
